FAERS Safety Report 14991539 (Version 2)
Quarter: 2018Q3

REPORT INFORMATION
  Report Type: Spontaneous
  Country: US (occurrence: US)
  Receive Date: 20180608
  Receipt Date: 20180703
  Transmission Date: 20181010
  Serious: Yes (Hospitalization, Other)
  Sender: FDA-Public Use
  Company Number: US-GLAXOSMITHKLINE-US2018101631

PATIENT
  Age: 74 Year
  Sex: Female

DRUGS (21)
  1. VENTOLIN HFA [Suspect]
     Active Substance: ALBUTEROL SULFATE
     Indication: CHRONIC OBSTRUCTIVE PULMONARY DISEASE
     Dosage: 1 PUFF(S), PRN
  2. ADVAIR DISKUS [Suspect]
     Active Substance: FLUTICASONE PROPIONATE\SALMETEROL XINAFOATE
     Dosage: 1 PUFF(S), QD
  3. ALEVE [Concomitant]
     Active Substance: NAPROXEN SODIUM
  4. FLUOXETINE [Concomitant]
     Active Substance: FLUOXETINE HYDROCHLORIDE
  5. ASPIRIN. [Concomitant]
     Active Substance: ASPIRIN
  6. COLACE [Concomitant]
     Active Substance: DOCUSATE SODIUM
  7. ROSUVASTATIN. [Concomitant]
     Active Substance: ROSUVASTATIN
  8. TERFENADINE [Concomitant]
     Active Substance: TERFENADINE
  9. CARVEDILOL. [Concomitant]
     Active Substance: CARVEDILOL
  10. OMEPRAZOLE. [Concomitant]
     Active Substance: OMEPRAZOLE
  11. ALBUTEROL NEBULIZER [Concomitant]
     Active Substance: ALBUTEROL
  12. HYDROCODONE [Concomitant]
     Active Substance: HYDROCODONE
  13. ZOLPIDEM [Concomitant]
     Active Substance: ZOLPIDEM\ZOLPIDEM TARTRATE
  14. BREO ELLIPTA [Suspect]
     Active Substance: FLUTICASONE FUROATE\VILANTEROL TRIFENATATE
     Indication: CHRONIC OBSTRUCTIVE PULMONARY DISEASE
     Dosage: 1 PUFF(S), 1D
  15. ALPRAZOLAM. [Concomitant]
     Active Substance: ALPRAZOLAM
  16. LOSARTAN. [Concomitant]
     Active Substance: LOSARTAN
  17. INCRUSE ELLIPTA [Suspect]
     Active Substance: UMECLIDINIUM BROMIDE
     Indication: CHRONIC OBSTRUCTIVE PULMONARY DISEASE
     Dosage: 1 PUFF(S), 1D
  18. ESTRACE [Concomitant]
     Active Substance: ESTRADIOL
  19. QUETIAPINE. [Concomitant]
     Active Substance: QUETIAPINE
  20. LAMOTRIGINE. [Suspect]
     Active Substance: LAMOTRIGINE
     Indication: PRODUCT USED FOR UNKNOWN INDICATION
     Dosage: UNK UNK, U
  21. BUPROPION. [Concomitant]
     Active Substance: BUPROPION

REACTIONS (8)
  - Colostomy [Recovered/Resolved]
  - Myocardial infarction [Recovered/Resolved]
  - Colonic abscess [Recovered/Resolved]
  - Colostomy closure [Recovered/Resolved]
  - Underdose [Recovered/Resolved]
  - Drug ineffective [Unknown]
  - Chronic obstructive pulmonary disease [Recovered/Resolved]
  - Cardiac disorder [Recovered/Resolved]

NARRATIVE: CASE EVENT DATE: 20161017
